FAERS Safety Report 19155809 (Version 1)
Quarter: 2021Q2

REPORT INFORMATION
  Report Type: Spontaneous
  Country: US (occurrence: US)
  Receive Date: 20210420
  Receipt Date: 20210420
  Transmission Date: 20210717
  Serious: Yes (Disabling, Other)
  Sender: FDA-Public Use
  Company Number: US-BAUSCH-BL-2021-013569

PATIENT
  Age: 66 Year
  Sex: Female

DRUGS (8)
  1. NEURONTIN [Concomitant]
     Active Substance: GABAPENTIN
  2. ZYLET [Suspect]
     Active Substance: LOTEPREDNOL ETABONATE\TOBRAMYCIN
     Indication: DRY EYE
     Dosage: 0.5%/0.3%
     Route: 065
     Dates: end: 2019
  3. LEMTRADA [Suspect]
     Active Substance: ALEMTUZUMAB
     Dosage: CYCLE 2
     Route: 041
     Dates: start: 20170516, end: 20170518
  4. ADDERALL [Suspect]
     Active Substance: AMPHETAMINE ASPARTATE\AMPHETAMINE SULFATE\DEXTROAMPHETAMINE SACCHARATE\DEXTROAMPHETAMINE SULFATE
     Indication: PRODUCT USED FOR UNKNOWN INDICATION
     Route: 065
  5. NEURONTIN [Concomitant]
     Active Substance: GABAPENTIN
     Indication: PRODUCT USED FOR UNKNOWN INDICATION
  6. NEURONTIN [Concomitant]
     Active Substance: GABAPENTIN
  7. LEMTRADA [Suspect]
     Active Substance: ALEMTUZUMAB
     Indication: MULTIPLE SCLEROSIS
     Dosage: CYCLE 1
     Route: 041
     Dates: start: 20160425, end: 20160429
  8. AJOVY [Suspect]
     Active Substance: FREMANEZUMAB-VFRM
     Indication: MIGRAINE
     Route: 065

REACTIONS (20)
  - Paraesthesia [Not Recovered/Not Resolved]
  - Meniscus injury [Recovered/Resolved]
  - Migraine [Not Recovered/Not Resolved]
  - Oral candidiasis [Recovered/Resolved]
  - Urinary tract infection [Recovered/Resolved]
  - Dry eye [Unknown]
  - Infective tenosynovitis [Unknown]
  - Asthenia [Recovering/Resolving]
  - Limb injury [Recovering/Resolving]
  - Sensitive skin [Unknown]
  - Fatigue [Recovering/Resolving]
  - Blood potassium decreased [Not Recovered/Not Resolved]
  - Temperature intolerance [Not Recovered/Not Resolved]
  - Pain in extremity [Recovered/Resolved]
  - Insomnia [Recovered/Resolved]
  - Condition aggravated [Not Recovered/Not Resolved]
  - Vertigo [Recovered/Resolved]
  - Thyroid function test abnormal [Not Recovered/Not Resolved]
  - Limb discomfort [Unknown]
  - Dysgraphia [Unknown]

NARRATIVE: CASE EVENT DATE: 2017
